FAERS Safety Report 5247280-0 (Version None)
Quarter: 2007Q1

REPORT INFORMATION
  Report Type: 
  Country: None (occurrence: None)
  Receive Date: 20070227
  Receipt Date: 20070221
  Transmission Date: 20070707
  Serious: Yes (Life-Threatening, Hospitalization)
  Sender: FDA-Public Use
  Company Number: PHBS2007JP02366

PATIENT
  Age: 70 Year
  Sex: Female

DRUGS (10)
  1. SLOW-K [Suspect]
     Indication: HYPOKALAEMIA
     Dates: start: 20070202, end: 20070206
  2. CYLOCK [Concomitant]
     Indication: HYPOKALAEMIA
     Dosage: 800 MG, UNK
     Route: 048
  3. TRANDOLAPRIL [Concomitant]
     Indication: HYPOKALAEMIA
     Dosage: 1 DF, UNK
     Route: 048
  4. LASIX [Concomitant]
     Indication: HYPOKALAEMIA
     Dosage: 0.5 DF, UNK
     Route: 048
  5. ALDACTONE [Concomitant]
     Indication: HYPOKALAEMIA
     Dosage: 1 DF, UNK
     Route: 048
  6. WARFARIN SODIUM [Concomitant]
     Indication: HYPOKALAEMIA
     Dosage: 1 DF, UNK
     Route: 048
  7. MEXILETINE HYDROCHLORIDE [Concomitant]
     Indication: HYPOKALAEMIA
     Dosage: 6 DF, UNK
     Route: 048
  8. MAGNESIUM OXIDE [Concomitant]
     Indication: HYPOKALAEMIA
     Dosage: 1 G, UNK
  9. VERAPAMIL [Concomitant]
     Indication: HYPOKALAEMIA
     Dosage: 3 DF, UNK
     Route: 048
  10. DOMPERIDONE [Concomitant]
     Indication: HYPERKALAEMIA
     Dosage: 3 G, UNK
     Route: 048

REACTIONS (12)
  - ALANINE AMINOTRANSFERASE INCREASED [None]
  - ASPARTATE AMINOTRANSFERASE INCREASED [None]
  - BLOOD BILIRUBIN INCREASED [None]
  - BLOOD LACTATE DEHYDROGENASE INCREASED [None]
  - BODY TEMPERATURE INCREASED [None]
  - EOSINOPHIL COUNT INCREASED [None]
  - GAMMA-GLUTAMYLTRANSFERASE INCREASED [None]
  - HAEMATOCRIT DECREASED [None]
  - HEART RATE INCREASED [None]
  - LIVER DISORDER [None]
  - NEUTROPHIL COUNT INCREASED [None]
  - WHITE BLOOD CELL COUNT INCREASED [None]
